FAERS Safety Report 8465228-2 (Version None)
Quarter: 2012Q2

REPORT INFORMATION
  Report Type: 
  Country: None (occurrence: None)
  Receive Date: 20120618
  Receipt Date: 20120602
  Transmission Date: 20120825
  Serious: Yes (Death, Hospitalization)
  Sender: FDA-Public Use
  Company Number: 2012AP001722

PATIENT
  Age: 34 Year
  Sex: Female

DRUGS (2)
  1. LIPID EMULSION [Suspect]
     Indication: CARDIOTOXICITY
  2. AMLODIPINE BESYLATE [Suspect]
     Indication: PRODUCT USED FOR UNKNOWN INDICATION

REACTIONS (2)
  - CARDIOTOXICITY [None]
  - CARDIAC ARREST [None]
